FAERS Safety Report 7684033-8 (Version None)
Quarter: 2011Q3

REPORT INFORMATION
  Report Type: 
  Country: None (occurrence: None)
  Receive Date: 20110815
  Receipt Date: 20110802
  Transmission Date: 20111222
  Serious: Yes (Hospitalization, Other)
  Sender: FDA-Public Use
  Company Number: US-CELGENEUS-163-21880-11032454

PATIENT
  Sex: Male

DRUGS (6)
  1. ASCORBIC ACID [Concomitant]
     Route: 065
  2. VITAMIN E [Concomitant]
     Route: 065
  3. CALCIUM CARBONATE [Concomitant]
     Route: 065
  4. REVLIMID [Suspect]
     Indication: MYELODYSPLASTIC SYNDROME
     Dosage: 10 MILLIGRAM
     Route: 048
     Dates: start: 20100315, end: 20110301
  5. ANTIBIOTICS [Concomitant]
     Route: 041
  6. EXJADE [Concomitant]
     Dosage: 2000 MILLIGRAM
     Route: 065

REACTIONS (2)
  - NEUTROPENIA [None]
  - CELLULITIS [None]
